FAERS Safety Report 23133964 (Version 1)
Quarter: 2023Q4

REPORT INFORMATION
  Report Type: Report from Study
  Country: US (occurrence: US)
  Receive Date: 20231101
  Receipt Date: 20231101
  Transmission Date: 20240109
  Serious: No
  Sender: FDA-Public Use
  Company Number: US-BIOVITRUM-2023-US-015351

PATIENT
  Age: 4 Year
  Sex: Male

DRUGS (2)
  1. KINERET [Suspect]
     Active Substance: ANAKINRA
     Indication: Epilepsy
     Dosage: DAILY
     Route: 058
     Dates: start: 20230921
  2. KINERET [Suspect]
     Active Substance: ANAKINRA
     Dosage: DOSE INCREASED.
     Route: 058

REACTIONS (2)
  - Intentional product misuse [Unknown]
  - Sleep disorder [Unknown]

NARRATIVE: CASE EVENT DATE: 20230921
